FAERS Safety Report 4546682-5 (Version None)
Quarter: 2005Q1

REPORT INFORMATION
  Report Type: 
  Country: None (occurrence: None)
  Receive Date: 20050105
  Receipt Date: 20041216
  Transmission Date: 20050727
  Serious: Yes (Other)
  Sender: FDA-Public Use
  Company Number: CIO04026297

PATIENT
  Age: 50 Year
  Sex: Female

DRUGS (1)
  1. CREST TOOTHPASTE,FORM/VERSION/FLAVOR UNKNOWN(POTASSIUM NITRATE,SODIUM [Suspect]
     Dosage: 1 APPLIC, INTRAORAL
     Route: 048

REACTIONS (2)
  - ANAPHYLACTIC REACTION [None]
  - THROAT TIGHTNESS [None]
